FAERS Safety Report 6064928-1 (Version None)
Quarter: 2009Q1

REPORT INFORMATION
  Report Type: 
  Country: None (occurrence: None)
  Receive Date: 20090203
  Receipt Date: 20090203
  Transmission Date: 20090719
  Serious: Yes (Other)
  Sender: FDA-Public Use
  Company Number: None

PATIENT
  Age: 58 Year
  Sex: Male

DRUGS (1)
  1. METFORMIN HCL [Suspect]
     Dosage: TWO TABLETS TWICE DAILY

REACTIONS (3)
  - DIARRHOEA [None]
  - MUSCLE SPASMS [None]
  - NAUSEA [None]
